FAERS Safety Report 5415533-9 (Version None)
Quarter: 2007Q3

REPORT INFORMATION
  Report Type: 
  Country: None (occurrence: None)
  Receive Date: 20070815
  Receipt Date: 20070810
  Transmission Date: 20080115
  Serious: Yes (Hospitalization)
  Sender: FDA-Public Use
  Company Number: A0669477A

PATIENT
  Age: 53 Year
  Sex: Female

DRUGS (5)
  1. LAMICTAL [Suspect]
     Indication: BIPOLAR DISORDER
     Route: 048
     Dates: start: 20051001, end: 20060401
  2. ESTROGEN [Concomitant]
  3. PROGESTERONE [Concomitant]
  4. LIPITOR [Concomitant]
  5. COZAAR [Concomitant]

REACTIONS (4)
  - HYPOTHYROIDISM [None]
  - PHOTOSENSITIVITY REACTION [None]
  - RASH [None]
  - SWOLLEN TONGUE [None]
